FAERS Safety Report 15115304 (Version 1)
Quarter: 2018Q3

REPORT INFORMATION
  Report Type: Spontaneous
  Country: FR (occurrence: FR)
  Receive Date: 20180706
  Receipt Date: 20180706
  Transmission Date: 20181010
  Serious: Yes (Death, Hospitalization, Other)
  Sender: FDA-Public Use
  Company Number: FR-BAYER-2018-114279

PATIENT

DRUGS (1)
  1. NEXAVAR [Suspect]
     Active Substance: SORAFENIB
     Indication: HEPATOCELLULAR CARCINOMA
     Dosage: 800 MG, QD
     Dates: start: 201803

REACTIONS (3)
  - Congestive cardiomyopathy [Fatal]
  - Dyspnoea [Fatal]
  - Ischaemic cardiomyopathy [None]

NARRATIVE: CASE EVENT DATE: 201803
